FAERS Safety Report 8129794-9 (Version None)
Quarter: 2012Q1

REPORT INFORMATION
  Report Type: 
  Country: None (occurrence: None)
  Receive Date: 20120210
  Receipt Date: 20120210
  Transmission Date: 20120608
  Serious: Yes (Hospitalization, Other)
  Sender: FDA-Public Use
  Company Number: None

PATIENT
  Age: 66 Year
  Sex: Female
  Weight: 68.038 kg

DRUGS (1)
  1. RECLAST [Suspect]
     Indication: OSTEOPOROSIS
     Dosage: ?
     Dates: start: 20120113, end: 20120113

REACTIONS (6)
  - VOMITING [None]
  - LIP SWELLING [None]
  - DYSPNOEA [None]
  - ABASIA [None]
  - MUSCULOSKELETAL CHEST PAIN [None]
  - THIRST [None]
